FAERS Safety Report 24537598 (Version 1)
Quarter: 2024Q4

REPORT INFORMATION
  Report Type: Report from Study
  Country: US (occurrence: US)
  Receive Date: 20241023
  Receipt Date: 20241023
  Transmission Date: 20250115
  Serious: Yes (Hospitalization)
  Sender: ABBVIE
  Company Number: US-ABBVIE-5965757

PATIENT
  Sex: Female
  Weight: 112 kg

DRUGS (3)
  1. ARMOUR THYROID [Suspect]
     Active Substance: THYROID, PORCINE
     Indication: Product used for unknown indication
     Dosage: TIME INTERVAL: 0.33333333 DAYS: FORM STRENGTH: 30 MILLIGRAM
     Route: 048
     Dates: start: 1991, end: 202408
  2. ARMOUR THYROID [Suspect]
     Active Substance: THYROID, PORCINE
     Indication: Product used for unknown indication
     Dosage: TIME INTERVAL: 0.33333333 DAYS: FORM STRENGTH: 30 MILLIGRAM
     Route: 048
     Dates: start: 202408
  3. TRAMADOL [Suspect]
     Active Substance: TRAMADOL
     Indication: Pain
     Route: 065

REACTIONS (8)
  - Nephrolithiasis [Not Recovered/Not Resolved]
  - Abdominal injury [Not Recovered/Not Resolved]
  - Kidney infection [Recovered/Resolved]
  - Abdominal pain [Recovering/Resolving]
  - Cellulitis [Recovered/Resolved]
  - Feeling abnormal [Not Recovered/Not Resolved]
  - Stoma site discharge [Recovered/Resolved]
  - Urine output decreased [Recovering/Resolving]

NARRATIVE: CASE EVENT DATE: 20240101
